FAERS Safety Report 8525687-3 (Version None)
Quarter: 2012Q3

REPORT INFORMATION
  Report Type: 
  Country: None (occurrence: None)
  Receive Date: 20120720
  Receipt Date: 20120705
  Transmission Date: 20120928
  Serious: No
  Sender: FDA-Public Use
  Company Number: US-009507513-1207USA001401

PATIENT

DRUGS (6)
  1. LEVOTHYROXINE SODIUM [Concomitant]
  2. PEG-INTRON [Suspect]
     Indication: HEPATITIS C
     Dosage: 150 MG, QW
     Route: 058
     Dates: start: 20120201
  3. TELAPREVIR [Suspect]
  4. CHOLECALCIFEROL [Concomitant]
  5. RIBAVIRIN [Suspect]
  6. AMLODIPINE [Concomitant]

REACTIONS (4)
  - DRY SKIN [None]
  - GINGIVAL DISCOLOURATION [None]
  - STOMATITIS [None]
  - ORAL MUCOSAL DISCOLOURATION [None]
